FAERS Safety Report 12738555 (Version 2)
Quarter: 2016Q3

REPORT INFORMATION
  Report Type: Spontaneous
  Country: US (occurrence: US)
  Receive Date: 20160913
  Receipt Date: 20160920
  Transmission Date: 20161109
  Serious: No
  Sender: FDA-Public Use
  Company Number: US-ACTELION-A-US2016-141538

PATIENT
  Age: 69 Year
  Sex: Female

DRUGS (8)
  1. REMODULIN [Suspect]
     Active Substance: TREPROSTINIL
     Indication: PULMONARY ARTERIAL HYPERTENSION
     Dosage: UNK, Q4HRS
     Route: 058
     Dates: start: 201604
  2. ELIQUIS [Concomitant]
     Active Substance: APIXABAN
  3. COUMADIN [Concomitant]
     Active Substance: WARFARIN SODIUM
  4. UPTRAVI [Suspect]
     Active Substance: SELEXIPAG
     Indication: PULMONARY ARTERIAL HYPERTENSION
     Route: 048
  5. ADCIRCA [Concomitant]
     Active Substance: TADALAFIL
  6. DILTIAZEM. [Concomitant]
     Active Substance: DILTIAZEM
  7. REVATIO [Concomitant]
     Active Substance: SILDENAFIL CITRATE
  8. AMBRISENTAN [Suspect]
     Active Substance: AMBRISENTAN
     Indication: PULMONARY ARTERIAL HYPERTENSION
     Dosage: 10 MG, UNK
     Route: 048
     Dates: start: 20160520

REACTIONS (14)
  - Eye swelling [Unknown]
  - Pain [Unknown]
  - Appetite disorder [Unknown]
  - Alopecia [Unknown]
  - Fatigue [Unknown]
  - Muscle spasms [Unknown]
  - Pain in extremity [Unknown]
  - Infusion site discharge [Unknown]
  - Nausea [Unknown]
  - Muscle spasms [Unknown]
  - Burning sensation [Unknown]
  - Pain in jaw [Unknown]
  - Infusion site pain [Unknown]
  - Infusion site infection [Unknown]

NARRATIVE: CASE EVENT DATE: 201604
